FAERS Safety Report 20412857 (Version 2)
Quarter: 2022Q1

REPORT INFORMATION
  Report Type: Spontaneous
  Country: GB (occurrence: GB)
  Receive Date: 20220201
  Receipt Date: 20220204
  Transmission Date: 20220423
  Serious: Yes (Other)
  Sender: FDA-Public Use
  Company Number: GB-009507513-2201GBR008721

PATIENT
  Sex: Female

DRUGS (3)
  1. PIFELTRO [Suspect]
     Active Substance: DORAVIRINE
     Dosage: 100 MG OD
     Route: 048
  2. LAMIVUDINE [Suspect]
     Active Substance: LAMIVUDINE
     Dosage: 100MG OD
  3. TIVICAY [Suspect]
     Active Substance: DOLUTEGRAVIR SODIUM
     Dosage: 50MG OD

REACTIONS (1)
  - Liver transplant [Unknown]
